FAERS Safety Report 24885896 (Version 2)
Quarter: 2025Q1

REPORT INFORMATION
  Report Type: Report from Study
  Country: US (occurrence: US)
  Receive Date: 20250125
  Receipt Date: 20250205
  Transmission Date: 20250408
  Serious: Yes (Death, Hospitalization, Other)
  Sender: ABBVIE
  Company Number: US-ABBVIE-6103651

PATIENT
  Age: 90 Year
  Sex: Female
  Weight: 90.718 kg

DRUGS (1)
  1. HUMIRA [Suspect]
     Active Substance: ADALIMUMAB
     Indication: Ankylosing spondylitis
     Dosage: UNKNOWN
     Route: 058
     Dates: start: 202308, end: 20250104

REACTIONS (9)
  - Cerebrovascular disorder [Fatal]
  - Hip arthroplasty [Recovered/Resolved]
  - Back pain [Not Recovered/Not Resolved]
  - Vascular dementia [Fatal]
  - Oedema peripheral [Not Recovered/Not Resolved]
  - Weight increased [Not Recovered/Not Resolved]
  - Haemostasis [Not Recovered/Not Resolved]
  - Hypertension [Unknown]
  - Faeces hard [Unknown]

NARRATIVE: CASE EVENT DATE: 20231101
